FAERS Safety Report 17201382 (Version 1)
Quarter: 2019Q4

REPORT INFORMATION
  Report Type: Spontaneous
  Country: ES (occurrence: ES)
  Receive Date: 20191226
  Receipt Date: 20191226
  Transmission Date: 20200122
  Serious: Yes (Hospitalization, Other)
  Sender: FDA-Public Use
  Company Number: ES-ASTRAZENECA-2019SF85617

PATIENT
  Sex: Male

DRUGS (1)
  1. FASENRA [Suspect]
     Active Substance: BENRALIZUMAB
     Route: 058

REACTIONS (9)
  - Hypersensitivity [Unknown]
  - Lung infiltration [Unknown]
  - Acute respiratory failure [Unknown]
  - Feeling abnormal [Unknown]
  - White blood cell count increased [Unknown]
  - Platelet count increased [Unknown]
  - Eosinophil count decreased [Unknown]
  - Autoimmune disorder [Unknown]
  - Pleural effusion [Unknown]
